FAERS Safety Report 18581779 (Version 1)
Quarter: 2020Q4

REPORT INFORMATION
  Report Type: Spontaneous
  Country: FR (occurrence: FR)
  Receive Date: 20201204
  Receipt Date: 20201204
  Transmission Date: 20210114
  Serious: Yes (Hospitalization)
  Sender: FDA-Public Use
  Company Number: FR-TEVA-2020-FR-1852788

PATIENT
  Age: 32 Year
  Sex: Male

DRUGS (6)
  1. PANTOPRAZOLE [Suspect]
     Active Substance: PANTOPRAZOLE
     Indication: INTENTIONAL OVERDOSE
     Route: 048
     Dates: start: 20201008, end: 20201008
  2. LAROXYL 40 MG/ML, SOLUTION BUVABLE [Suspect]
     Active Substance: AMITRIPTYLINE HYDROCHLORIDE
     Indication: INTENTIONAL OVERDOSE
     Route: 048
     Dates: start: 20201008, end: 20201008
  3. THIOCOLCHICOSIDE [Suspect]
     Active Substance: THIOCOLCHICOSIDE
     Indication: INTENTIONAL OVERDOSE
     Route: 048
     Dates: start: 20201008, end: 20201008
  4. DICLOFENAC [Suspect]
     Active Substance: DICLOFENAC
     Indication: INTENTIONAL OVERDOSE
     Route: 048
     Dates: start: 20201008, end: 20201008
  5. MIRTAZAPINE. [Suspect]
     Active Substance: MIRTAZAPINE
     Indication: INTENTIONAL OVERDOSE
     Route: 048
     Dates: start: 20201008, end: 20201008
  6. ESCITALOPRAM [Suspect]
     Active Substance: ESCITALOPRAM OXALATE
     Indication: INTENTIONAL OVERDOSE
     Route: 048
     Dates: start: 20201008, end: 20201008

REACTIONS (4)
  - Poisoning deliberate [Recovered/Resolved]
  - Muscle twitching [Recovered/Resolved]
  - Somnolence [Recovered/Resolved]
  - Vomiting [Recovered/Resolved]

NARRATIVE: CASE EVENT DATE: 20201008
